FAERS Safety Report 23424570 (Version 1)
Quarter: 2024Q1

REPORT INFORMATION
  Report Type: Spontaneous
  Country: CO (occurrence: CO)
  Receive Date: 20240120
  Receipt Date: 20240120
  Transmission Date: 20240409
  Serious: Yes (Hospitalization, Other)
  Sender: FDA-Public Use
  Company Number: CO-MSNLABS-2024MSNSPO00119

PATIENT

DRUGS (1)
  1. ABIRATERONE ACETATE [Suspect]
     Active Substance: ABIRATERONE ACETATE
     Indication: Hormone-refractory prostate cancer
     Route: 048
     Dates: start: 20220820

REACTIONS (3)
  - Pain in extremity [Recovering/Resolving]
  - Mobility decreased [Recovering/Resolving]
  - Spinal cord disorder [Unknown]
